FAERS Safety Report 13648837 (Version 2)
Quarter: 2017Q4

REPORT INFORMATION
  Report Type: Spontaneous
  Country: US (occurrence: US)
  Receive Date: 20170613
  Receipt Date: 20171027
  Transmission Date: 20180320
  Serious: Yes (Other)
  Sender: FDA-Public Use
  Company Number: US-SA-2017SA102705

PATIENT
  Age: 26 Year
  Sex: Male

DRUGS (1)
  1. UNISOM SLEEPTABS [Suspect]
     Active Substance: DOXYLAMINE SUCCINATE
     Route: 048

REACTIONS (2)
  - Drug abuse [Unknown]
  - Overdose [Unknown]
